FAERS Safety Report 17562239 (Version 1)
Quarter: 2020Q1

REPORT INFORMATION
  Report Type: Spontaneous
  Country: FR (occurrence: FR)
  Receive Date: 20200319
  Receipt Date: 20200319
  Transmission Date: 20200409
  Serious: Yes (Other)
  Sender: FDA-Public Use
  Company Number: FR-MYLANLABS-2020M1028780

PATIENT
  Age: 80 Year
  Sex: Female
  Weight: 92 kg

DRUGS (1)
  1. CELECOXIB MYLAN PHARMA 200 MG, G?LULE [Suspect]
     Active Substance: CELECOXIB
     Indication: OSTEOARTHRITIS
     Dosage: 200 MILLIGRAM, QD
     Route: 048
     Dates: start: 20170110, end: 20170113

REACTIONS (3)
  - Fall [Recovered/Resolved]
  - Ecchymosis [Recovered/Resolved]
  - Vertigo [Recovered/Resolved]

NARRATIVE: CASE EVENT DATE: 20170110
